FAERS Safety Report 4557794-4 (Version None)
Quarter: 2005Q1

REPORT INFORMATION
  Report Type: 
  Country: None (occurrence: None)
  Receive Date: 20050121
  Receipt Date: 20050111
  Transmission Date: 20050727
  Serious: Yes (Hospitalization)
  Sender: FDA-Public Use
  Company Number: JP-JNJFOC-20040808331

PATIENT
  Sex: Female
  Weight: 60 kg

DRUGS (20)
  1. REMICADE [Suspect]
     Route: 042
  2. REMICADE [Suspect]
     Route: 042
  3. REMICADE [Suspect]
     Route: 042
  4. REMICADE [Suspect]
     Route: 042
  5. REMICADE [Suspect]
     Route: 042
  6. REMICADE [Suspect]
     Indication: RHEUMATOID ARTHRITIS
     Route: 042
  7. RHEUMATREX [Concomitant]
     Indication: RHEUMATOID ARTHRITIS
     Dosage: APPROXIMATELY
     Route: 049
  8. PREDONIN [Concomitant]
     Route: 049
  9. PREDONIN [Concomitant]
     Indication: RHEUMATOID ARTHRITIS
     Route: 049
  10. LOXONIN [Concomitant]
     Dosage: 3 T
     Route: 049
  11. LOXONIN [Concomitant]
     Indication: RHEUMATOID ARTHRITIS
     Route: 049
  12. KETOPROFEN [Concomitant]
     Indication: RHEUMATOID ARTHRITIS
  13. CYTOTEC [Concomitant]
     Route: 049
  14. GASTER [Concomitant]
     Route: 049
  15. COLINORM [Concomitant]
     Route: 049
  16. MAZUREN S [Concomitant]
     Route: 049
  17. MAZUREN S [Concomitant]
     Dosage: 2 GRAMS
     Route: 049
  18. UNNORM [Concomitant]
     Route: 049
  19. RIMATIL [Concomitant]
  20. FOLIAMIN [Concomitant]
     Route: 049

REACTIONS (3)
  - DIARRHOEA [None]
  - DISSEMINATED TUBERCULOSIS [None]
  - PYREXIA [None]
